FAERS Safety Report 4322547-9 (Version None)
Quarter: 2004Q1

REPORT INFORMATION
  Report Type: 
  Country: None (occurrence: None)
  Receive Date: 20040322
  Receipt Date: 20040322
  Transmission Date: 20041129
  Serious: Yes (Other)
  Sender: FDA-Public Use
  Company Number: None

PATIENT
  Age: 68 Year
  Sex: Male
  Weight: 164 kg

DRUGS (36)
  1. GATIFLOXACIN [Suspect]
  2. ACCU-CHECK COMFORT CURVE-H TEST STRIP [Concomitant]
  3. ALBUTEROL [Concomitant]
  4. IPRATROPIUM BROMIDE INHL [Concomitant]
  5. SIMVASTATIN [Concomitant]
  6. METFORMIN HCL [Concomitant]
  7. PHENAZOPYRIDINE HCL TAB [Concomitant]
  8. LANCET [Concomitant]
  9. ALCOHOL PREP PAD [Concomitant]
  10. CELECOXIB [Concomitant]
  11. GABAPENTIN [Concomitant]
  12. HUMULIN N [Concomitant]
  13. INSULIN SYRINGE [Concomitant]
  14. ISOSORBIDE DINITRATE [Concomitant]
  15. LANCET [Concomitant]
  16. MECLIZINE HCL [Concomitant]
  17. METHOCARBAMOL [Concomitant]
  18. ROSIGLITAZONE MALEATE [Concomitant]
  19. ROSIGLITAZONE MALEATE [Concomitant]
  20. A AND D OINT [Concomitant]
  21. PAPAIN 83000U/UREA [Concomitant]
  22. CASTOR OIL/PERUVIAN BALSAM /TRYPSIN AEROSOL, TOP [Concomitant]
  23. WARFARIN SODIUM [Concomitant]
  24. SCODIUM CHLORIDE NASAL SPRAY [Concomitant]
  25. POTASSIUM CHLORIDE [Concomitant]
  26. GATIFLOXACIN [Concomitant]
  27. METHOCARBAMOL [Concomitant]
  28. ISOSORBIDE DINITRATE [Concomitant]
  29. GABAPENTIN [Concomitant]
  30. FUROSEMIDE [Concomitant]
  31. ACETAMINOPHEN AND HYDROCODONE BITARTRATE [Concomitant]
  32. DOCUSATE SODIUM [Concomitant]
  33. ALBUTEROL SOL (PREMIX) [Concomitant]
  34. IPRATROPIUM INHL [Concomitant]
  35. INSULI8N REG HUMAN 100U/ML INJ NOVOLIN R [Concomitant]
  36. NPH INSULIN [Concomitant]

REACTIONS (1)
  - HALLUCINATION [None]
